FAERS Safety Report 16601811 (Version 2)
Quarter: 2019Q3

REPORT INFORMATION
  Report Type: Report from Study
  Country: US (occurrence: US)
  Receive Date: 20190719
  Receipt Date: 20190724
  Transmission Date: 20191004
  Serious: Yes (Hospitalization, Other)
  Sender: FDA-Public Use
  Company Number: US-BRISTOL-MYERS SQUIBB COMPANY-BMS-2019-069710

PATIENT
  Age: 55 Year
  Sex: Male
  Weight: 133.79 kg

DRUGS (2)
  1. PACLITAXEL ALBUMIN [Suspect]
     Active Substance: PACLITAXEL
     Indication: NEOPLASM MALIGNANT
     Dosage: 263 MILLIGRAM, QWK
     Route: 042
     Dates: start: 20190129, end: 20190326
  2. NIVOLUMAB [Suspect]
     Active Substance: NIVOLUMAB
     Indication: NEOPLASM MALIGNANT
     Dosage: 360 MILLIGRAM, Q3WK
     Route: 042
     Dates: start: 20190129, end: 20190312

REACTIONS (6)
  - Pleural effusion [Unknown]
  - Oedema peripheral [Unknown]
  - Adrenal insufficiency [Unknown]
  - Pneumonia [Recovered/Resolved]
  - Pleuritic pain [Unknown]
  - Hypophysitis [Recovered/Resolved]

NARRATIVE: CASE EVENT DATE: 20190516
